FAERS Safety Report 4416377-7 (Version None)
Quarter: 2004Q3

REPORT INFORMATION
  Report Type: 
  Country: None (occurrence: None)
  Receive Date: 20040805
  Receipt Date: 20040726
  Transmission Date: 20050211
  Serious: Yes (Other)
  Sender: FDA-Public Use
  Company Number: NO-GLAXOSMITHKLINE-B0340910A

PATIENT
  Sex: Male

DRUGS (2)
  1. PAROXETINE HCL [Suspect]
     Indication: DEPRESSION
     Dates: start: 19960108
  2. CIPRAMIL [Concomitant]
     Indication: DEPRESSION
     Dates: start: 19970101

REACTIONS (7)
  - DEPRESSION [None]
  - DISABILITY [None]
  - DIVORCED [None]
  - DRUG DEPENDENCE [None]
  - DRY MOUTH [None]
  - FEAR [None]
  - SUICIDAL IDEATION [None]
